FAERS Safety Report 5800540-4 (Version None)
Quarter: 2008Q3

REPORT INFORMATION
  Report Type: 
  Country: None (occurrence: None)
  Receive Date: 20080701
  Receipt Date: 20080620
  Transmission Date: 20090109
  Serious: Yes (Other)
  Sender: FDA-Public Use
  Company Number: 2008052194

PATIENT
  Age: 36 Year
  Sex: Female

DRUGS (1)
  1. FRAGMIN [Suspect]
     Indication: FACTOR V LEIDEN MUTATION
     Dosage: 5000 I.U. (5000 I.U., 1 IN 1 D), SUBCUTANEOUS
     Route: 058
     Dates: start: 20070901, end: 20080601

REACTIONS (3)
  - DRUG EXPOSURE DURING PREGNANCY [None]
  - LUMBAR VERTEBRAL FRACTURE [None]
  - OSTEOPOROSIS [None]
